FAERS Safety Report 6516183-3 (Version None)
Quarter: 2009Q4

REPORT INFORMATION
  Report Type: 
  Country: None (occurrence: None)
  Receive Date: 20091223
  Receipt Date: 20091215
  Transmission Date: 20100525
  Serious: Yes (Hospitalization)
  Sender: FDA-Public Use
  Company Number: CZ-B.I. PHARMACEUTICALS,INC./RIDGEFIELD-2009-DE-07721GD

PATIENT
  Age: 33 Year
  Sex: Male

DRUGS (3)
  1. TIPRANAVIR [Suspect]
     Indication: HIV INFECTION
  2. TENOFOVIR [Suspect]
     Indication: HIV INFECTION
  3. ENFUVIRTIDE [Suspect]
     Indication: HIV INFECTION

REACTIONS (4)
  - ABDOMINAL PAIN LOWER [None]
  - APPENDICITIS [None]
  - IMMUNE RECONSTITUTION SYNDROME [None]
  - VOMITING [None]
